FAERS Safety Report 15084259 (Version 2)
Quarter: 2018Q2

REPORT INFORMATION
  Report Type: Spontaneous
  Country: US (occurrence: US)
  Receive Date: 20180628
  Receipt Date: 20180629
  Transmission Date: 20180711
  Serious: Yes (Other)
  Sender: FDA-Public Use
  Company Number: US-MYLANLABS-2018M1046915

PATIENT
  Age: 47 Year
  Sex: Female

DRUGS (1)
  1. POLYETHYLENE GLYCOL 3350 AND ELECTROLYTES FOR ORAL SOLUTION, USP [Suspect]
     Active Substance: POLYETHYLENE GLYCOLS\POTASSIUM SODIUM SULFATE\SODIUM BICARBONATE\SODIUM CHLORATE
     Indication: COLONOSCOPY
     Dosage: UNK
     Route: 048
     Dates: start: 20180620, end: 20180621

REACTIONS (3)
  - Choking [Recovered/Resolved]
  - Product quality issue [Recovered/Resolved]
  - Abdominal pain upper [Unknown]

NARRATIVE: CASE EVENT DATE: 20180620
